FAERS Safety Report 15240250 (Version 1)
Quarter: 2018Q3

REPORT INFORMATION
  Report Type: Spontaneous
  Country: US (occurrence: US)
  Receive Date: 20180804
  Receipt Date: 20180804
  Transmission Date: 20181010
  Serious: Yes (Hospitalization, Other)
  Sender: FDA-Public Use
  Company Number: US-009507513-1808USA001057

PATIENT
  Age: 63 Year
  Sex: Female

DRUGS (1)
  1. HYDROCORTONE [Suspect]
     Active Substance: HYDROCORTISONE
     Dosage: 30 MG, DAILY
     Route: 048

REACTIONS (1)
  - Adrenal insufficiency [Recovered/Resolved]
